FAERS Safety Report 5834458-8 (Version None)
Quarter: 2008Q3

REPORT INFORMATION
  Report Type: 
  Country: None (occurrence: None)
  Receive Date: 20080805
  Receipt Date: 20080715
  Transmission Date: 20090109
  Serious: No
  Sender: FDA-Public Use
  Company Number: US-BOEHRINGER INGELHEIM GMBH, GERMANY-2008-BP-11069BP

PATIENT
  Sex: Female

DRUGS (2)
  1. MIRAPEX [Suspect]
     Indication: PARKINSON'S DISEASE
  2. MIRAPEX [Suspect]
     Indication: TREMOR

REACTIONS (4)
  - COMPULSIVE SHOPPING [None]
  - IMPULSE-CONTROL DISORDER [None]
  - MANIA [None]
  - PATHOLOGICAL GAMBLING [None]
